FAERS Safety Report 9722454 (Version 2)
Quarter: 2014Q1

REPORT INFORMATION
  Report Type: Report from Study
  Country: BR (occurrence: BR)
  Receive Date: 20131202
  Receipt Date: 20140106
  Transmission Date: 20141002
  Serious: Yes (Death, Other)
  Sender: FDA-Public Use
  Company Number: PHHY2013BR138911

PATIENT
  Sex: Male
  Weight: 70 kg

DRUGS (3)
  1. DIOVAN HCT [Suspect]
     Indication: BLOOD PRESSURE ABNORMAL
     Dosage: 1 DF, QD (160 MG VALS AND 12.5 MG HCTZ)
     Route: 048
  2. SEROQUEL [Concomitant]
     Indication: DEMENTIA
     Dosage: 2 TABLEST (25 MG), DAILY
     Route: 048
     Dates: end: 20131006
  3. AAS [Concomitant]
     Indication: CARDIOVASCULAR DISORDER
     Dosage: 2 TABLETS (20 MG), DAILY
     Route: 048

REACTIONS (7)
  - Respiratory arrest [Fatal]
  - Cardiac arrest [Fatal]
  - Arrhythmia [Fatal]
  - Septic shock [Fatal]
  - Pneumonia [Fatal]
  - Lower limb fracture [Unknown]
  - Fall [Unknown]
